FAERS Safety Report 16034179 (Version 1)
Quarter: 2019Q1

REPORT INFORMATION
  Report Type: Spontaneous
  Country: IT (occurrence: IT)
  Receive Date: 20190305
  Receipt Date: 20190305
  Transmission Date: 20190418
  Serious: Yes (Death, Other)
  Sender: FDA-Public Use
  Company Number: IT-ACCORD-111423

PATIENT

DRUGS (7)
  1. ZEVALIN [Suspect]
     Active Substance: IBRITUMOMAB TIUXETAN
     Indication: PRODUCT USED FOR UNKNOWN INDICATION
     Dosage: WITH A MAXIMUM TOTAL DOSE OF 32 MCI
     Route: 065
  2. MELPHALAN. [Suspect]
     Active Substance: MELPHALAN
     Indication: SURGICAL PRECONDITIONING
     Dosage: 140 MG/M2, QD, ON DAY - 1 ; CYCLICAL
     Route: 065
  3. ETOPOSIDE. [Suspect]
     Active Substance: ETOPOSIDE
     Indication: SURGICAL PRECONDITIONING
     Dosage: 200 MG/M2, UNK, ON DAYS  - 5 TO  - 2  CYCLIC
     Route: 065
  4. RITUXIMAB. [Suspect]
     Active Substance: RITUXIMAB
     Indication: B-CELL LYMPHOMA
     Dosage: 250 MG/KG, UNK (ON DAY 14)
     Route: 065
  5. FILGRASTIM/GRANULOCYTE COLONY STIMULATING/LENOGRASTIM [Concomitant]
     Indication: PRODUCT USED FOR UNKNOWN INDICATION
     Dosage: 5 G/KG, QD, ON DAY 1
     Route: 065
  6. CYTARABINE/CYTARABINE HYDROCHLORIDE/CYTARABINE OCFOSFATE [Suspect]
     Active Substance: CYTARABINE
     Indication: SURGICAL PRECONDITIONING
     Dosage: 1 DF-100 MG/ML
     Route: 065
  7. CARMUSTINE. [Suspect]
     Active Substance: CARMUSTINE
     Indication: SURGICAL PRECONDITIONING
     Dosage: 300 MG/M2, UNK, ON DAYS  6 CYCLIC
     Route: 065

REACTIONS (5)
  - Progressive multifocal leukoencephalopathy [Fatal]
  - B-cell lymphoma [Unknown]
  - Off label use [Unknown]
  - Refractory anaemia with an excess of blasts [Unknown]
  - JC virus infection [Fatal]
